FAERS Safety Report 7723283-9 (Version None)
Quarter: 2011Q3

REPORT INFORMATION
  Report Type: 
  Country: None (occurrence: None)
  Receive Date: 20110901
  Receipt Date: 20110825
  Transmission Date: 20111222
  Serious: Yes (Other)
  Sender: FDA-Public Use
  Company Number: JP-PFIZER INC-2011166406

PATIENT
  Age: 54 Year

DRUGS (6)
  1. ZYVOX [Suspect]
     Route: 041
  2. NORTRIPTYLINE HCL [Concomitant]
  3. PENTASA [Concomitant]
  4. CODEINE PHOSPHATE [Concomitant]
  5. LYRICA [Suspect]
     Route: 048
  6. IMURAN [Concomitant]

REACTIONS (1)
  - DELUSION [None]
